FAERS Safety Report 24200087 (Version 1)
Quarter: 2024Q3

REPORT INFORMATION
  Report Type: Spontaneous
  Country: US (occurrence: None)
  Receive Date: 20240809
  Receipt Date: 20240809
  Transmission Date: 20241016
  Serious: Yes (Death)
  Sender: Public
  Company Number: None

PATIENT
  Age: 74 Year
  Sex: Female

DRUGS (9)
  1. PIQRAY [Suspect]
     Active Substance: ALPELISIB
     Indication: Breast cancer metastatic
     Dosage: FREQUENCY : DAILY;?
     Route: 048
  2. Lorazepam 2mg/ml [Concomitant]
  3. hyoscyamine 0.125 [Concomitant]
  4. Haloperidol 2mg/ml [Concomitant]
  5. Hydrochlorothiazide 25mg [Concomitant]
  6. Morphine Sulfate 20mg/ml [Concomitant]
  7. Cholestyramine 4gm [Concomitant]
  8. Gabapentin 100mg [Concomitant]
  9. Stimulant 8.6-50mg [Concomitant]

REACTIONS (1)
  - Disease progression [None]

NARRATIVE: CASE EVENT DATE: 20240701
